FAERS Safety Report 13900924 (Version 3)
Quarter: 2017Q4

REPORT INFORMATION
  Report Type: Report from Study
  Country: None (occurrence: HU)
  Receive Date: 20170824
  Receipt Date: 20171030
  Transmission Date: 20180320
  Serious: Yes (Hospitalization, Other)
  Sender: FDA-Public Use
  Company Number: HU-ABBVIE-17K-076-2075077-00

PATIENT
  Age: 71 Year
  Sex: Female

DRUGS (5)
  1. DUODOPA [Suspect]
     Active Substance: CARBIDOPA\LEVODOPA
     Indication: PARKINSON^S DISEASE
     Dosage: MORNING DOSE 8ML; CONTINUOUS DOSE 2.6ML/H;EXTRA DOSE 1.5ML
     Route: 050
     Dates: start: 20141031
  2. ASPIRIN. [Concomitant]
     Active Substance: ASPIRIN
     Indication: PROPHYLAXIS
     Dosage: 1 TABLET IN THE MORNING
     Route: 048
     Dates: start: 2009
  3. STIMULOTON [Concomitant]
     Indication: DEPRESSION
     Dosage: 1 TABLET IN THE MORNING
     Route: 048
     Dates: start: 2013
  4. XANAX XR [Concomitant]
     Active Substance: ALPRAZOLAM
     Indication: DEPRESSION
     Route: 048
     Dates: start: 2011
  5. PK-MERZ [Concomitant]
     Active Substance: AMANTADINE
     Indication: PARKINSON^S DISEASE
     Dosage: 1 TABLET IN THE MORNING,1 TABLET AT NOON
     Route: 048
     Dates: start: 2016

REACTIONS (9)
  - Duodenal ulcer perforation [Unknown]
  - Stoma site inflammation [Not Recovered/Not Resolved]
  - Stoma site erythema [Not Recovered/Not Resolved]
  - Nausea [Recovering/Resolving]
  - Stoma site discharge [Not Recovered/Not Resolved]
  - Stoma site induration [Not Recovered/Not Resolved]
  - Anaemia [Unknown]
  - Duodenal ulcer haemorrhage [Unknown]
  - Vomiting [Recovering/Resolving]

NARRATIVE: CASE EVENT DATE: 201708
